FAERS Safety Report 9739760 (Version 2)
Quarter: 2014Q1

REPORT INFORMATION
  Report Type: Spontaneous
  Country: US (occurrence: US)
  Receive Date: 20131209
  Receipt Date: 20140310
  Transmission Date: 20141002
  Serious: Yes (Other)
  Sender: FDA-Public Use
  Company Number: US-ASTELLAS-2013US011371

PATIENT
  Sex: Male

DRUGS (1)
  1. XTANDI [Suspect]
     Indication: PROSTATE CANCER
     Dosage: 1000 MG, UID/QD
     Route: 048
     Dates: start: 20130507

REACTIONS (5)
  - Intentional drug misuse [Unknown]
  - Ear infection [Unknown]
  - Fall [Unknown]
  - Scar [Unknown]
  - Dizziness [Unknown]
